FAERS Safety Report 14479865 (Version 3)
Quarter: 2018Q2

REPORT INFORMATION
  Report Type: Spontaneous
  Country: US (occurrence: US)
  Receive Date: 20180202
  Receipt Date: 20180427
  Transmission Date: 20180711
  Serious: Yes (Other)
  Sender: FDA-Public Use
  Company Number: US-TESARO INC.-TS50-00169-2018USA

PATIENT
  Age: 65 Year
  Sex: Male

DRUGS (2)
  1. ROLAPITANT HYDROCHLORIDE [Suspect]
     Active Substance: ROLAPITANT
     Indication: VOMITING
  2. ROLAPITANT HYDROCHLORIDE [Suspect]
     Active Substance: ROLAPITANT
     Indication: NAUSEA
     Dosage: 180MG, EVERY 2 WEEKS
     Route: 048
     Dates: start: 20170720

REACTIONS (3)
  - Malignant neoplasm progression [Not Recovered/Not Resolved]
  - Gallbladder operation [Unknown]
  - Fatigue [Unknown]

NARRATIVE: CASE EVENT DATE: 201801
